FAERS Safety Report 9996266 (Version 1)
Quarter: 2014Q1

REPORT INFORMATION
  Report Type: Spontaneous
  Country: US (occurrence: None)
  Receive Date: 20140310
  Receipt Date: 20140310
  Transmission Date: 20141002
  Serious: No
  Sender: FDA-Public Use
  Company Number: None

PATIENT
  Sex: Female

DRUGS (1)
  1. ROBITUSSIN (GUAIFENESIN) [Suspect]
     Dosage: LOT #?R11945

REACTIONS (2)
  - Medication error [None]
  - Incorrect dose administered [None]
